FAERS Safety Report 4917815-3 (Version None)
Quarter: 2006Q1

REPORT INFORMATION
  Report Type: 
  Country: None (occurrence: None)
  Receive Date: 20060221
  Receipt Date: 20060111
  Transmission Date: 20060701
  Serious: Yes (Other)
  Sender: FDA-Public Use
  Company Number: US-AVENTIS-200610365US

PATIENT
  Sex: Female
  Weight: 63.63 kg

DRUGS (6)
  1. LANTUS [Suspect]
     Indication: DIABETES MELLITUS NON-INSULIN-DEPENDENT
     Dosage: DOSE UNIT: UNITS
     Dates: start: 20050901, end: 20051201
  2. LANTUS [Suspect]
     Dosage: DOSE UNIT: UNITS
     Dates: start: 20051201, end: 20051201
  3. LANTUS [Suspect]
     Dosage: DOSE UNIT: UNITS
     Dates: start: 20051230
  4. LANTUS [Suspect]
     Dosage: DOSE UNIT: UNITS
     Dates: start: 20060101, end: 20060109
  5. LANTUS [Suspect]
     Dosage: DOSE UNIT: UNITS
     Dates: start: 20060110
  6. VICODIN [Concomitant]
     Indication: ARTHRALGIA

REACTIONS (8)
  - BLOOD GLUCOSE DECREASED [None]
  - BLOOD GLUCOSE FLUCTUATION [None]
  - BLOOD GLUCOSE INCREASED [None]
  - CONVULSION [None]
  - HYPOGLYCAEMIA [None]
  - HYPOGLYCAEMIA UNAWARENESS [None]
  - MUSCLE TWITCHING [None]
  - TREMOR [None]
